FAERS Safety Report 5110139-3 (Version None)
Quarter: 2006Q3

REPORT INFORMATION
  Report Type: 
  Country: None (occurrence: None)
  Receive Date: 20060921
  Receipt Date: 20060814
  Transmission Date: 20061208
  Serious: Yes (Death)
  Sender: FDA-Public Use
  Company Number: 2006UW16144

PATIENT
  Age: 53 Year
  Sex: Female
  Weight: 99.8 kg

DRUGS (19)
  1. NEXIUM [Suspect]
     Indication: GASTROOESOPHAGEAL REFLUX DISEASE
     Route: 048
     Dates: start: 20060308
  2. DOXYCLYCLINE HYCLATE [Interacting]
     Route: 048
     Dates: start: 20060804, end: 20060801
  3. GABAPENTIN [Concomitant]
     Route: 048
     Dates: start: 20060724
  4. DIAZEPAM [Concomitant]
     Route: 048
     Dates: start: 20060717
  5. BUMEX [Concomitant]
     Route: 048
     Dates: start: 20060715
  6. ALLOPURINOL [Concomitant]
     Route: 048
     Dates: start: 20060629
  7. LEVOTHYROXINE SODIUM [Concomitant]
     Route: 048
     Dates: start: 20060629
  8. VICODIN [Concomitant]
     Route: 048
     Dates: start: 20060614
  9. FENTANYL [Concomitant]
     Dates: start: 20060612
  10. TIZANIDINE HCL [Concomitant]
     Route: 048
     Dates: start: 20060612
  11. NITROGLYCERIN [Concomitant]
     Route: 060
     Dates: start: 20060308
  12. ZOLOFT [Concomitant]
     Route: 048
  13. POTASSIUM [Concomitant]
     Route: 048
  14. INSULIN [Concomitant]
  15. REGLAN [Concomitant]
     Route: 048
  16. ALBUTEROL [Concomitant]
  17. COMPAZINE [Concomitant]
     Route: 048
  18. MYLANTA [Concomitant]
     Route: 048
  19. PREDNISONE [Concomitant]
     Route: 048

REACTIONS (5)
  - ABDOMINAL DISCOMFORT [None]
  - CARDIAC ARREST [None]
  - DRUG INTERACTION [None]
  - MYOCARDIAL INFARCTION [None]
  - VENTRICULAR FIBRILLATION [None]
